FAERS Safety Report 9827063 (Version 1)
Quarter: 2014Q1

REPORT INFORMATION
  Report Type: Spontaneous
  Country: US (occurrence: US)
  Receive Date: 20140117
  Receipt Date: 20140117
  Transmission Date: 20141002
  Serious: No
  Sender: FDA-Public Use
  Company Number: US-GLAXOSMITHKLINE-A1029022A

PATIENT
  Age: 80 Year
  Sex: Female

DRUGS (2)
  1. PROMACTA [Suspect]
     Indication: PRODUCT USED FOR UNKNOWN INDICATION
     Dosage: 50MG SEE DOSAGE TEXT
     Route: 048
  2. FUROSEMIDE [Concomitant]
     Indication: PRODUCT USED FOR UNKNOWN INDICATION
     Route: 065

REACTIONS (4)
  - Local swelling [Recovering/Resolving]
  - Joint swelling [Recovering/Resolving]
  - Paraesthesia [Recovering/Resolving]
  - Skin tightness [Recovering/Resolving]
